FAERS Safety Report 4672365-7 (Version None)
Quarter: 2005Q2

REPORT INFORMATION
  Report Type: 
  Country: None (occurrence: None)
  Receive Date: 20050520
  Receipt Date: 20050512
  Transmission Date: 20051028
  Serious: Yes (Hospitalization)
  Sender: FDA-Public Use
  Company Number: 2005-04-0219

PATIENT
  Age: 53 Year
  Sex: Female

DRUGS (6)
  1. CELESTONE [Suspect]
     Indication: BRONCHITIS
     Dates: start: 20050308, end: 20050309
  2. DOLIPRANE [Suspect]
     Dates: start: 20050308, end: 20050309
  3. CARBOCISTEINE ORAL [Suspect]
     Indication: BRONCHITIS
     Dosage: ORAL
     Route: 048
     Dates: start: 20050308, end: 20050309
  4. QVAR 40 [Suspect]
     Indication: BRONCHITIS
     Dosage: INHALATION
     Route: 055
     Dates: start: 20050308, end: 20050309
  5. DERINOX NASAL SOLUTION [Suspect]
     Indication: BRONCHITIS
     Dates: start: 20050308, end: 20050309
  6. PYOSTACINE TABLETS [Suspect]
     Indication: BRONCHITIS
     Dosage: 1500 MG TOTAL ORAL
     Route: 048
     Dates: start: 20050308, end: 20050309

REACTIONS (2)
  - PRURITUS [None]
  - RASH ERYTHEMATOUS [None]
